FAERS Safety Report 8156175-4 (Version None)
Quarter: 2012Q1

REPORT INFORMATION
  Report Type: 
  Country: None (occurrence: None)
  Receive Date: 20120221
  Receipt Date: 20120221
  Transmission Date: 20120608
  Serious: Yes (Other)
  Sender: FDA-Public Use
  Company Number: None

PATIENT
  Sex: Male
  Weight: 62.5964 kg

DRUGS (2)
  1. HUMATROPE [Suspect]
     Indication: BLOOD GROWTH HORMONE
     Dosage: .60 1/DAILY INJECT
     Dates: start: 20111126
  2. HUMATROPE [Suspect]
     Indication: BLOOD GROWTH HORMONE
     Dosage: .60 1/DAILY INJECT
     Dates: start: 20120206

REACTIONS (2)
  - DEVICE ISSUE [None]
  - PRODUCT QUALITY ISSUE [None]
